FAERS Safety Report 8343348-0 (Version None)
Quarter: 2012Q2

REPORT INFORMATION
  Report Type: 
  Country: None (occurrence: None)
  Receive Date: 20120503
  Receipt Date: 20120503
  Transmission Date: 20120825
  Serious: No
  Sender: FDA-Public Use
  Company Number: None

PATIENT
  Sex: Female

DRUGS (2)
  1. PEGASYS [Suspect]
     Dosage: 180MCG WEEKLY SUBQ
     Route: 058
     Dates: start: 20120405
  2. RIBAVIRIN [Suspect]
     Dosage: 00MG 400MG QAM QPM PO
     Route: 048
     Dates: start: 20120405

REACTIONS (4)
  - NIGHT SWEATS [None]
  - ABDOMINAL DISTENSION [None]
  - HEADACHE [None]
  - ABDOMINAL SYMPTOM [None]
